FAERS Safety Report 19377535 (Version 2)
Quarter: 2021Q4

REPORT INFORMATION
  Report Type: Report from Study
  Country: KR (occurrence: KR)
  Receive Date: 20210605
  Receipt Date: 20211110
  Transmission Date: 20220303
  Serious: Yes (Other)
  Sender: FDA-Public Use
  Company Number: KR-KYOWAKIRIN-2021AKK009427

PATIENT
  Age: 61 Year
  Sex: Female

DRUGS (44)
  1. FILGRASTIM [Suspect]
     Active Substance: FILGRASTIM
     Indication: Product used for unknown indication
     Dosage: 150 UNK
     Route: 065
     Dates: start: 20080814, end: 20080814
  2. DARBEPOETIN ALFA [Concomitant]
     Active Substance: DARBEPOETIN ALFA
     Indication: Product used for unknown indication
     Dosage: 100 UNK
     Route: 065
     Dates: start: 20080722, end: 20080725
  3. DARBEPOETIN ALFA [Concomitant]
     Active Substance: DARBEPOETIN ALFA
     Dosage: 100 UNK
     Route: 065
     Dates: start: 20080821, end: 20080829
  4. DARBEPOETIN ALFA [Concomitant]
     Active Substance: DARBEPOETIN ALFA
     Dosage: 100 UNK
     Route: 065
     Dates: start: 20080909, end: 20080916
  5. DARBEPOETIN ALFA [Concomitant]
     Active Substance: DARBEPOETIN ALFA
     Dosage: 100 UNK
     Route: 065
     Dates: start: 20080930, end: 20080930
  6. DARBEPOETIN ALFA [Concomitant]
     Active Substance: DARBEPOETIN ALFA
     Dosage: 100 UNK
     Route: 065
     Dates: start: 20081021, end: 20081021
  7. DARBEPOETIN ALFA [Concomitant]
     Active Substance: DARBEPOETIN ALFA
     Dosage: 100 UNK
     Route: 065
     Dates: start: 20081028, end: 20081028
  8. DARBEPOETIN ALFA [Concomitant]
     Active Substance: DARBEPOETIN ALFA
     Dosage: 120 UNK
     Route: 065
     Dates: start: 20080722, end: 20080722
  9. DARBEPOETIN ALFA [Concomitant]
     Active Substance: DARBEPOETIN ALFA
     Dosage: 120 UNK
     Route: 065
     Dates: start: 20080821, end: 20080829
  10. DARBEPOETIN ALFA [Concomitant]
     Active Substance: DARBEPOETIN ALFA
     Dosage: 120 UNK
     Route: 065
     Dates: start: 20080909, end: 20080916
  11. DARBEPOETIN ALFA [Concomitant]
     Active Substance: DARBEPOETIN ALFA
     Dosage: 120 UNK
     Route: 065
     Dates: start: 20080930, end: 20080930
  12. DARBEPOETIN ALFA [Concomitant]
     Active Substance: DARBEPOETIN ALFA
     Dosage: 120 UNK
     Route: 065
     Dates: start: 20081021, end: 20081021
  13. DARBEPOETIN ALFA [Concomitant]
     Active Substance: DARBEPOETIN ALFA
     Dosage: 120 UNK
     Route: 065
     Dates: start: 20081028, end: 20081028
  14. PEMETREXED [Concomitant]
     Active Substance: PEMETREXED
     Indication: Product used for unknown indication
     Dosage: 775 MILLIGRAM
     Dates: start: 20080715, end: 20080715
  15. PEMETREXED [Concomitant]
     Active Substance: PEMETREXED
     Dosage: 775 MILLIGRAM
     Dates: start: 20080805, end: 20080805
  16. PEMETREXED [Concomitant]
     Active Substance: PEMETREXED
     Dosage: 775 MILLIGRAM
     Dates: start: 20080830, end: 20080830
  17. PEMETREXED [Concomitant]
     Active Substance: PEMETREXED
     Dosage: 775 MILLIGRAM
     Dates: start: 20080922, end: 20080922
  18. PEMETREXED [Concomitant]
     Active Substance: PEMETREXED
     Dosage: 775 MILLIGRAM
     Dates: start: 20081022, end: 20081022
  19. ALBUMIN HUMAN [Concomitant]
     Active Substance: ALBUMIN HUMAN
     Indication: Product used for unknown indication
     Dosage: 100 UNK
     Dates: start: 20080822, end: 20080822
  20. DEXAMETHASONE [Concomitant]
     Active Substance: DEXAMETHASONE
     Indication: Product used for unknown indication
     Dosage: UNK
     Dates: start: 20080714, end: 20080716
  21. DEXAMETHASONE [Concomitant]
     Active Substance: DEXAMETHASONE
     Dosage: UNK
     Dates: start: 20080804, end: 20080806
  22. DEXAMETHASONE [Concomitant]
     Active Substance: DEXAMETHASONE
     Dosage: UNK
     Dates: start: 20080829, end: 20080831
  23. DEXAMETHASONE [Concomitant]
     Active Substance: DEXAMETHASONE
     Dosage: UNK
     Dates: start: 20080921, end: 20080923
  24. DEXAMETHASONE [Concomitant]
     Active Substance: DEXAMETHASONE
     Dosage: UNK
     Dates: start: 20081021, end: 20081023
  25. DEXAMETHASONE [Concomitant]
     Active Substance: DEXAMETHASONE
     Dosage: 3.75 MILLIGRAM
     Dates: start: 20080714, end: 20080716
  26. DEXAMETHASONE [Concomitant]
     Active Substance: DEXAMETHASONE
     Dosage: 3.75 MILLIGRAM
     Dates: start: 20080804, end: 20080806
  27. DEXAMETHASONE [Concomitant]
     Active Substance: DEXAMETHASONE
     Dosage: 3.75 MILLIGRAM
     Dates: start: 20080829, end: 20080831
  28. DEXAMETHASONE [Concomitant]
     Active Substance: DEXAMETHASONE
     Dosage: 3.75 MILLIGRAM
     Dates: start: 20080921, end: 20080923
  29. DEXAMETHASONE [Concomitant]
     Active Substance: DEXAMETHASONE
     Dosage: 3.75 MILLIGRAM
     Dates: start: 20081021, end: 20081023
  30. DOMPERIDONE [Concomitant]
     Active Substance: DOMPERIDONE
     Indication: Product used for unknown indication
     Dosage: 10 MILLIGRAM
     Dates: start: 20081111, end: 20081124
  31. FOLIC ACID [Concomitant]
     Active Substance: FOLIC ACID
     Indication: Product used for unknown indication
     Dosage: 1 MILLIGRAM
     Dates: start: 20080715, end: 20080804
  32. FOLIC ACID [Concomitant]
     Active Substance: FOLIC ACID
     Dosage: 1 MILLIGRAM
     Dates: start: 20080805, end: 20080829
  33. FOLIC ACID [Concomitant]
     Active Substance: FOLIC ACID
     Dosage: 1 MILLIGRAM
     Dates: start: 20080830, end: 20080921
  34. FOLIC ACID [Concomitant]
     Active Substance: FOLIC ACID
     Dosage: 1 MILLIGRAM
     Dates: start: 20080922, end: 20081021
  35. FOLIC ACID [Concomitant]
     Active Substance: FOLIC ACID
     Dosage: 1 MILLIGRAM
     Dates: start: 20081022, end: 20081125
  36. HYDROCHLOROTHIAZIDE [Concomitant]
     Active Substance: HYDROCHLOROTHIAZIDE
     Indication: Product used for unknown indication
     Dosage: 12.5 MILLIGRAM
     Dates: start: 20080805, end: 20080829
  37. MEGESTROLO [Concomitant]
     Indication: Product used for unknown indication
     Dosage: 200 MILLIGRAM
     Dates: start: 20081111, end: 20081124
  38. METOCLOPRAMIDE [Concomitant]
     Active Substance: METOCLOPRAMIDE
     Indication: Product used for unknown indication
     Dosage: 10 MILLIGRAM
     Dates: start: 20080715, end: 20080715
  39. METOCLOPRAMIDE [Concomitant]
     Active Substance: METOCLOPRAMIDE
     Dosage: 10 MILLIGRAM
     Dates: start: 20080830, end: 20080830
  40. METOCLOPRAMIDE [Concomitant]
     Active Substance: METOCLOPRAMIDE
     Dosage: 10 MILLIGRAM
     Dates: start: 20080922, end: 20080922
  41. ACETAMINOPHEN [Concomitant]
     Active Substance: ACETAMINOPHEN
     Indication: Product used for unknown indication
     Dosage: 325 MILLIGRAM
     Dates: start: 20080902, end: 20080904
  42. ACETAMINOPHEN [Concomitant]
     Active Substance: ACETAMINOPHEN
     Dosage: 325 MILLIGRAM
     Dates: start: 20080930, end: 20081001
  43. ACETAMINOPHEN [Concomitant]
     Active Substance: ACETAMINOPHEN
     Dosage: 325 MILLIGRAM
     Dates: start: 20080902, end: 20080904
  44. ACETAMINOPHEN [Concomitant]
     Active Substance: ACETAMINOPHEN
     Dosage: 325 MILLIGRAM
     Dates: start: 20080930, end: 20081001

REACTIONS (9)
  - Granulocytopenia [Recovered/Resolved]
  - Granulocytopenia [Recovered/Resolved]
  - Decreased appetite [Recovered/Resolved]
  - Dyspepsia [Recovered/Resolved]
  - Upper respiratory tract infection [Recovered/Resolved]
  - Upper respiratory tract infection [Recovered/Resolved]
  - Leukocytosis [Recovered/Resolved]
  - Anaemia [Not Recovered/Not Resolved]
  - Oedema [Recovered/Resolved]

NARRATIVE: CASE EVENT DATE: 20080722
